FAERS Safety Report 13665521 (Version 1)
Quarter: 2017Q2

REPORT INFORMATION
  Report Type: Spontaneous
  Country: US (occurrence: US)
  Receive Date: 20170619
  Receipt Date: 20170619
  Transmission Date: 20170830
  Serious: No
  Sender: FDA-Public Use
  Company Number: US-DRREDDYS-USA/USA/16/0081996

PATIENT
  Age: 64 Year
  Sex: Female

DRUGS (1)
  1. OLANZAPINE TABLETS 2.5 MG, 5 MG, 7.5 MG, 10 MG [Suspect]
     Active Substance: OLANZAPINE
     Indication: MULTIPLE SCLEROSIS
     Dosage: 1/2 TABLET ONCE DAILY AT BEDTIME
     Route: 048

REACTIONS (3)
  - Panic attack [Not Recovered/Not Resolved]
  - Product counterfeit [Unknown]
  - Product colour issue [Unknown]
